FAERS Safety Report 6527093-X (Version None)
Quarter: 2010Q1

REPORT INFORMATION
  Report Type: 
  Country: None (occurrence: None)
  Receive Date: 20100105
  Receipt Date: 20091224
  Transmission Date: 20100710
  Serious: Yes (Hospitalization)
  Sender: FDA-Public Use
  Company Number: US-ELI_LILLY_AND_COMPANY-US200912005774

PATIENT
  Sex: Female

DRUGS (11)
  1. HUMALOG [Suspect]
     Indication: DIABETES MELLITUS
     Dosage: 3 U, EACH MORNING
  2. HUMALOG [Suspect]
     Dosage: 5 U, UNK
  3. HUMALOG [Suspect]
     Dosage: 11 U, EACH EVENING
  4. HUMALOG [Suspect]
     Dosage: UNK, AS NEEDED
  5. HUMALOG [Suspect]
     Dosage: 3 U, EACH MORNING
  6. HUMALOG [Suspect]
     Dosage: 5 U, UNK
  7. HUMALOG [Suspect]
     Dosage: 11 U, EACH EVENING
  8. HUMALOG [Suspect]
     Dosage: UNK, AS NEEDED
  9. HUMULIN N [Suspect]
     Indication: DIABETES MELLITUS
     Dosage: 20 U, EACH MORNING
  10. HUMULIN N [Suspect]
     Dosage: 20 U, EACH EVENING
  11. ANTIHYPERTENSIVES [Concomitant]
     Indication: HYPERTENSION

REACTIONS (5)
  - CEREBROVASCULAR ACCIDENT [None]
  - DIPLOPIA [None]
  - DIZZINESS [None]
  - EYE DISORDER [None]
  - MACULAR DEGENERATION [None]
